FAERS Safety Report 14373834 (Version 1)
Quarter: 2018Q1

REPORT INFORMATION
  Report Type: Spontaneous
  Country: CN (occurrence: CN)
  Receive Date: 20180110
  Receipt Date: 20180110
  Transmission Date: 20180509
  Serious: Yes (Life-Threatening, Other)
  Sender: FDA-Public Use
  Company Number: CN-BAXTER-2018BAX001081

PATIENT
  Age: 76 Year
  Sex: Male

DRUGS (2)
  1. MEDIUM AND LONG CHAIN FAT EMULSION INJECTION (C8-24) [Suspect]
     Active Substance: GLYCERIN\MEDIUM-CHAIN TRIGLYCERIDES\PHOSPHOLIPID\SOYBEAN OIL
     Indication: PARENTERAL NUTRITION
     Route: 041
     Dates: start: 20171108, end: 20171108
  2. 5% GLUCOSE  INJECTION [Suspect]
     Active Substance: DEXTROSE
     Indication: PARENTERAL NUTRITION
     Route: 041
     Dates: start: 20171108, end: 20171108

REACTIONS (3)
  - Chills [Recovering/Resolving]
  - Arrhythmia [Recovering/Resolving]
  - Oxygen saturation decreased [Recovering/Resolving]

NARRATIVE: CASE EVENT DATE: 20171108
